FAERS Safety Report 22616781 (Version 1)
Quarter: 2023Q2

REPORT INFORMATION
  Report Type: Spontaneous
  Country: None (occurrence: US)
  Receive Date: 20230619
  Receipt Date: 20230619
  Transmission Date: 20230722
  Serious: Yes (Other)
  Sender: FDA-Public Use
  Company Number: US-GREER Laboratories, Inc.-2142861

PATIENT
  Age: 76 Year
  Sex: Male

DRUGS (17)
  1. EASTERN 10 TREE POLLEN MIX [Suspect]
     Active Substance: ACER SACCHARUM POLLEN\BETULA NIGRA POLLEN\CARYA OVATA POLLEN\FAGUS GRANDIFOLIA POLLEN\FRAXINUS AMERI
     Indication: Rhinitis allergic
     Route: 058
     Dates: start: 20211028
  2. PEPPERTREE POLLEN MIX [Suspect]
     Active Substance: SCHINUS MOLLE POLLEN\SCHINUS TEREBINTHIFOLIUS POLLEN
     Route: 058
     Dates: start: 20211028
  3. RED MULBERRY POLLEN [Suspect]
     Active Substance: MORUS RUBRA POLLEN
     Route: 058
     Dates: start: 20211028
  4. QUEEN PALM POLLEN [Suspect]
     Active Substance: SYAGRUS ROMANZOFFIANA POLLEN
     Route: 058
     Dates: start: 20211028
  5. WAX MYRTLE POLLEN [Suspect]
     Active Substance: MORELLA CERIFERA POLLEN
     Route: 058
     Dates: start: 20211028
  6. HACKBERRY POLLEN [Suspect]
     Active Substance: CELTIS OCCIDENTALIS POLLEN
     Route: 058
     Dates: start: 20211028
  7. COMMON WEED MIX [Suspect]
     Active Substance: AMARANTHUS RETROFLEXUS POLLEN\CHENOPODIUM ALBUM POLLEN\PLANTAGO LANCEOLATA POLLEN\SALSOLA KALI POLLE
     Route: 058
     Dates: start: 20211028
  8. POLLENS - WEEDS, DOCK/SORREL MIX [Suspect]
     Active Substance: RUMEX ACETOSELLA POLLEN\RUMEX CRISPUS POLLEN
     Route: 058
     Dates: start: 20211028
  9. EUPATORIUM CAPILLIFOLIUM POLLEN [Suspect]
     Active Substance: EUPATORIUM CAPILLIFOLIUM POLLEN
     Route: 058
     Dates: start: 20211028
  10. BACCHARIS [Suspect]
     Active Substance: BACCHARIS HALIMIFOLIA POLLEN\BACCHARIS SAROTHROIDES WHOLE
     Route: 058
     Dates: start: 20211028
  11. SINGULAIR [Concomitant]
     Active Substance: MONTELUKAST SODIUM
  12. ASPIRIN [Concomitant]
     Active Substance: ASPIRIN
  13. NITROGLYCERIN [Concomitant]
     Active Substance: NITROGLYCERIN
  14. LOSARTAN [Concomitant]
     Active Substance: LOSARTAN
  15. DILTIAZEM [Concomitant]
     Active Substance: DILTIAZEM
  16. ROSUVASTATIN [Concomitant]
     Active Substance: ROSUVASTATIN
  17. ISOSORBIDE DINITRATE [Concomitant]
     Active Substance: ISOSORBIDE DINITRATE

REACTIONS (3)
  - Cough [Recovered/Resolved]
  - Dyspnoea [Recovered/Resolved]
  - Swelling of eyelid [Recovered/Resolved]

NARRATIVE: CASE EVENT DATE: 20230601
